FAERS Safety Report 9623512 (Version 1)
Quarter: 2013Q4

REPORT INFORMATION
  Report Type: Spontaneous
  Country: GB (occurrence: None)
  Receive Date: 20131010
  Receipt Date: 20131010
  Transmission Date: 20140711
  Serious: Yes (Other)
  Sender: FDA-Public Use
  Company Number: CO-OR-UK-2013-117

PATIENT
  Sex: 0

DRUGS (3)
  1. PREDNISOLONE [Suspect]
     Indication: EYE INFLAMMATION
     Dosage: ADMINISTERED BETWEEN PULS 1 AND 2 AT 40-60 MG ONCE DAILY AND THEN REDEUCED BETWEEN PULSES 2 AND 3 TO 40-30 MG ONCE DAILY ORAL
  2. METHYLPREDNISOLONE [Suspect]
     Indication: EYE INFLAMMATION
     Dosage: 10 MG/KG AT DOSING INTERVALS02,4,7,10 AND 13 WEEKS WITH FURTHER PULSUES ON MONTHLY TO A MAX OF 9 PULSES
  3. CYCLOPHOSPHAMIDE [Suspect]
     Indication: EYE INFLAMMATION
     Dosage: DOSE INTERVALS 0,2,4,7,10 13 WEEKS WITH FURTHERE PULSES MONTHLY MAX 9 PULSES

REACTIONS (1)
  - Thrombocytopenia [None]
